FAERS Safety Report 21838543 (Version 1)
Quarter: 2023Q1

REPORT INFORMATION
  Report Type: Report from Study
  Country: CN (occurrence: CN)
  Receive Date: 20230109
  Receipt Date: 20230109
  Transmission Date: 20230418
  Serious: Yes (Hospitalization)
  Sender: FDA-Public Use
  Company Number: CN-AstraZeneca-2022A385832

PATIENT
  Age: 71 Year
  Sex: Female

DRUGS (6)
  1. PACLITAXEL [Suspect]
     Active Substance: PACLITAXEL
     Dosage: 118.8 MG, WEEK
     Route: 042
     Dates: start: 20221108, end: 20221108
  2. PACLITAXEL [Suspect]
     Active Substance: PACLITAXEL
     Dosage: 118.8 MG, WEEK
     Route: 042
     Dates: start: 20221116, end: 20221116
  3. INVESTIGATIONAL PRODUCT [Suspect]
     Active Substance: INVESTIGATIONAL PRODUCT
     Indication: Triple negative breast cancer
     Dosage: 400 MG, 2X/DAY
     Dates: start: 20221109, end: 20221112
  4. INVESTIGATIONAL PRODUCT [Suspect]
     Active Substance: INVESTIGATIONAL PRODUCT
     Dosage: 400 MG, 2X/DAY
     Dates: start: 20221117, end: 20221120
  5. SITAGLIPTIN [Concomitant]
     Active Substance: SITAGLIPTIN
     Indication: Diabetes mellitus
     Dosage: 100 G, DAILY
     Route: 048
  6. VOGLIBOSE [Concomitant]
     Active Substance: VOGLIBOSE
     Indication: Diabetes mellitus
     Dosage: 2 MG, 3X/DAY
     Route: 048

REACTIONS (1)
  - Hypokalaemia [Recovered/Resolved]
